FAERS Safety Report 16683612 (Version 1)
Quarter: 2019Q3

REPORT INFORMATION
  Report Type: Spontaneous
  Country: US (occurrence: US)
  Receive Date: 20190808
  Receipt Date: 20190808
  Transmission Date: 20191004
  Serious: No
  Sender: FDA-Public Use
  Company Number: US-ALLERGAN-1928446US

PATIENT
  Sex: Male

DRUGS (6)
  1. VIAFLEX [Concomitant]
     Indication: PAIN IN EXTREMITY
     Dosage: UNK
  2. ANDRODERM [Suspect]
     Active Substance: TESTOSTERONE
     Dosage: 2 MG, BID
  3. ANDRODERM [Suspect]
     Active Substance: TESTOSTERONE
     Indication: HORMONE REPLACEMENT THERAPY
     Dosage: 4 MG, QD
  4. VIAFLEX [Concomitant]
     Indication: PAIN IN EXTREMITY
  5. VIAFLEX [Concomitant]
     Indication: ARTHRALGIA
  6. UNSPECIFIED EYEDROPS [Concomitant]
     Dosage: UNK

REACTIONS (6)
  - Product dose omission [Unknown]
  - Feeling abnormal [Recovering/Resolving]
  - Muscle spasms [Unknown]
  - Off label use [Unknown]
  - Malaise [Unknown]
  - Musculoskeletal pain [Unknown]
